FAERS Safety Report 4706175-9 (Version None)
Quarter: 2005Q2

REPORT INFORMATION
  Report Type: 
  Country: None (occurrence: None)
  Receive Date: 20050204
  Receipt Date: 20050204
  Transmission Date: 20051028
  Serious: Yes (Other)
  Sender: FDA-Public Use
  Company Number: None

PATIENT
  Sex: Female
  Weight: 54.4316 kg

DRUGS (1)
  1. TIAZAC [Suspect]
     Indication: HYPERTENSION
     Dosage: ONE PO DAILY
     Route: 048

REACTIONS (3)
  - GINGIVAL SWELLING [None]
  - SWELLING [None]
  - TOOTH DISORDER [None]
